FAERS Safety Report 13228069 (Version 1)
Quarter: 2017Q1

REPORT INFORMATION
  Report Type: Report from Study
  Country: None (occurrence: JP)
  Receive Date: 20170213
  Receipt Date: 20170213
  Transmission Date: 20170428
  Serious: Yes (Hospitalization)
  Sender: FDA-Public Use
  Company Number: JP-ABBVIE-17P-087-1870455-00

PATIENT
  Age: 76 Year
  Sex: Male
  Weight: 45.8 kg

DRUGS (26)
  1. ASPHAGEN [Concomitant]
     Indication: SUPPLEMENTATION THERAPY
     Route: 042
     Dates: start: 20101207, end: 20141111
  2. FLUTICASONE PROPIONATE. [Concomitant]
     Active Substance: FLUTICASONE PROPIONATE
     Dates: start: 20140415, end: 20150209
  3. HEPARINOID [Concomitant]
     Active Substance: CHONDROITIN SULFATE (BOVINE)
     Indication: ECZEMA ASTEATOTIC
     Dosage: Q.S.
     Route: 061
     Dates: start: 20140331
  4. DEPRODONE PROPIONATE [Concomitant]
     Active Substance: DEPRODONE PROPIONATE
     Indication: ECZEMA ASTEATOTIC
     Dosage: Q.S.
     Route: 061
     Dates: start: 20140331
  5. ATROPINE SULFATE. [Concomitant]
     Active Substance: ATROPINE SULFATE
     Indication: HIGH FREQUENCY ABLATION
     Route: 042
     Dates: start: 20140730, end: 20140730
  6. CEFAZOLIN SODIUM. [Concomitant]
     Active Substance: CEFAZOLIN SODIUM
     Dates: start: 20140731, end: 20140801
  7. HYDROXYZINE HYDROCHLORIDE. [Concomitant]
     Active Substance: HYDROXYZINE HYDROCHLORIDE
     Indication: HIGH FREQUENCY ABLATION
     Route: 042
     Dates: start: 20140730, end: 20140730
  8. CEFAZOLIN SODIUM. [Concomitant]
     Active Substance: CEFAZOLIN SODIUM
     Indication: HIGH FREQUENCY ABLATION
     Route: 042
     Dates: start: 20140730, end: 20140730
  9. CARBOHYDRATES NOS W/POTASSIUM CHLORIDE/SODIUM [Concomitant]
     Indication: HIGH FREQUENCY ABLATION
     Route: 042
     Dates: start: 20140730, end: 20140730
  10. GLUCOSE [Concomitant]
     Active Substance: DEXTROSE
     Indication: HIGH FREQUENCY ABLATION
     Route: 042
     Dates: start: 20140730, end: 20140730
  11. CARBAZOCHROME SODIUM SULFONATE [Concomitant]
     Active Substance: CARBAZOCHROME SODIUM SULFONATE
     Indication: HIGH FREQUENCY ABLATION
     Route: 042
     Dates: start: 20140730, end: 20140730
  12. TRANEXAMIC ACID. [Concomitant]
     Active Substance: TRANEXAMIC ACID
     Indication: HIGH FREQUENCY ABLATION
     Route: 042
     Dates: start: 20140731, end: 20140731
  13. FALKAMIN [Concomitant]
     Indication: HYPOALBUMINAEMIA
     Route: 048
     Dates: start: 20101221, end: 20141111
  14. TRANEXAMIC ACID. [Concomitant]
     Active Substance: TRANEXAMIC ACID
     Indication: HIGH FREQUENCY ABLATION
     Route: 042
     Dates: start: 20140730, end: 20140730
  15. HEPARIN SODIUM. [Concomitant]
     Active Substance: HEPARIN SODIUM
     Indication: HIGH FREQUENCY ABLATION
     Route: 042
     Dates: start: 20140731, end: 20140731
  16. OYPALOMIN [Concomitant]
     Active Substance: IOPAMIDOL
     Indication: COMPUTERISED TOMOGRAM
     Route: 042
     Dates: start: 20140731, end: 20140731
  17. VIEKIRAX [Suspect]
     Active Substance: OMBITASVIR\PARITAPREVIR\RITONAVIR
     Indication: CHRONIC HEPATITIS C
     Route: 048
     Dates: start: 20140303, end: 20140526
  18. SORBITHARTMAN [Concomitant]
     Indication: HIGH FREQUENCY ABLATION
     Route: 042
     Dates: start: 20140730, end: 20140731
  19. GLUCOSE [Concomitant]
     Active Substance: DEXTROSE
     Dates: start: 20140731, end: 20140801
  20. SODIUM CHLORIDE. [Concomitant]
     Active Substance: SODIUM CHLORIDE
     Indication: NUCLEAR MAGNETIC RESONANCE IMAGING
     Dosage: Q.S.
     Route: 042
     Dates: start: 20140620, end: 20140620
  21. GADOXETATE DISODIUM [Concomitant]
     Active Substance: GADOXETATE DISODIUM
     Indication: NUCLEAR MAGNETIC RESONANCE IMAGING
     Dosage: Q.S.
     Route: 042
     Dates: start: 20140620, end: 20140620
  22. SENNA [Concomitant]
     Active Substance: SENNA LEAF\SENNOSIDES\SENNOSIDES A AND B
     Indication: HIGH FREQUENCY ABLATION
     Route: 048
     Dates: start: 20140729, end: 20140729
  23. PENTAZOCINE [Concomitant]
     Active Substance: PENTAZOCINE
     Indication: HIGH FREQUENCY ABLATION
     Route: 042
     Dates: start: 20140730, end: 20140730
  24. URSODEOXYCHOLIC ACID [Concomitant]
     Active Substance: URSODIOL
     Indication: SUPPLEMENTATION THERAPY
     Route: 048
     Dates: start: 19951121, end: 20141111
  25. FLUTICASONE PROPIONATE. [Concomitant]
     Active Substance: FLUTICASONE PROPIONATE
     Indication: ASTHMA
     Route: 055
     Dates: start: 20131015, end: 20140415
  26. CARBAZOCHROME SODIUM SULFONATE [Concomitant]
     Active Substance: CARBAZOCHROME SODIUM SULFONATE
     Dates: start: 20140731, end: 20140731

REACTIONS (1)
  - Pancreatitis acute [Recovered/Resolved]

NARRATIVE: CASE EVENT DATE: 20151121
